FAERS Safety Report 8842200 (Version 1)
Quarter: 2012Q4

REPORT INFORMATION
  Report Type: Spontaneous
  Country: US (occurrence: None)
  Receive Date: 20121015
  Receipt Date: 20121015
  Transmission Date: 20130627
  Serious: No
  Sender: FDA-Public Use
  Company Number: None

PATIENT
  Age: 33 Year
  Sex: Female
  Weight: 59 kg

DRUGS (1)
  1. AZATHIOPRINE [Suspect]
     Indication: CROHN^S DISEASE
     Route: 048
     Dates: start: 20120817, end: 20120909

REACTIONS (7)
  - Malaise [None]
  - Diarrhoea haemorrhagic [None]
  - Pancreatitis [None]
  - Abdominal distension [None]
  - Dizziness [None]
  - Drug intolerance [None]
  - Weight decreased [None]
